FAERS Safety Report 17691074 (Version 2)
Quarter: 2020Q2

REPORT INFORMATION
  Report Type: Report from Study
  Country: None (occurrence: US)
  Receive Date: 20200422
  Receipt Date: 20200515
  Transmission Date: 20200714
  Serious: Yes (Death, Hospitalization)
  Sender: FDA-Public Use
  Company Number: US-ABBVIE-20K-163-3259781-00

PATIENT
  Sex: Female

DRUGS (36)
  1. VENCLEXTA [Suspect]
     Active Substance: VENETOCLAX
     Indication: COGNITIVE DISORDER
  2. VENCLEXTA [Suspect]
     Active Substance: VENETOCLAX
     Indication: ANAEMIA
  3. VENCLEXTA [Suspect]
     Active Substance: VENETOCLAX
     Indication: PYREXIA
  4. VENCLEXTA [Suspect]
     Active Substance: VENETOCLAX
     Indication: INSOMNIA
  5. VENCLEXTA [Suspect]
     Active Substance: VENETOCLAX
     Indication: ANGINA PECTORIS
  6. VENCLEXTA [Suspect]
     Active Substance: VENETOCLAX
     Indication: HYPERLIPIDAEMIA
     Dosage: THEN TAKE 2 TABLET BY MOUTH DAILY FOR 1 DAY
     Route: 048
  7. VENCLEXTA [Suspect]
     Active Substance: VENETOCLAX
     Indication: PETIT MAL EPILEPSY
     Dosage: THEN TAKE 4 TABLET BY MOUTH DAILY FOR 1 DAY/THEN TAKE 4 TABLET BY MOUTH DAILY
     Route: 048
  8. VENCLEXTA [Suspect]
     Active Substance: VENETOCLAX
     Indication: MONOCYTOSIS
  9. VENCLEXTA [Suspect]
     Active Substance: VENETOCLAX
     Indication: HAEMOPTYSIS
  10. VENCLEXTA [Suspect]
     Active Substance: VENETOCLAX
     Indication: ACUTE LEUKAEMIA
  11. VENCLEXTA [Suspect]
     Active Substance: VENETOCLAX
     Indication: PANCYTOPENIA
  12. VENCLEXTA [Suspect]
     Active Substance: VENETOCLAX
     Indication: PROPHYLAXIS
  13. VENCLEXTA [Suspect]
     Active Substance: VENETOCLAX
     Indication: DEMENTIA
  14. VENCLEXTA [Suspect]
     Active Substance: VENETOCLAX
     Indication: DEHYDRATION
  15. VENCLEXTA [Suspect]
     Active Substance: VENETOCLAX
     Indication: COLON CANCER
  16. VENCLEXTA [Suspect]
     Active Substance: VENETOCLAX
     Indication: TENSION HEADACHE
  17. VENCLEXTA [Suspect]
     Active Substance: VENETOCLAX
     Indication: ESSENTIAL HYPERTENSION
  18. VENCLEXTA [Suspect]
     Active Substance: VENETOCLAX
     Indication: SLEEP APNOEA SYNDROME
  19. VENCLEXTA [Suspect]
     Active Substance: VENETOCLAX
     Indication: MIXED INCONTINENCE
  20. VENCLEXTA [Suspect]
     Active Substance: VENETOCLAX
     Indication: LIVER FUNCTION TEST ABNORMAL
  21. VENCLEXTA [Suspect]
     Active Substance: VENETOCLAX
     Indication: HYPOVOLAEMIA
  22. VENCLEXTA [Suspect]
     Active Substance: VENETOCLAX
     Indication: ACUTE MYELOID LEUKAEMIA
     Dosage: TAKE 1 TABLET BY MOUTH DAILY WITH BREAKFAST DAY 1
     Route: 048
  23. VENCLEXTA [Suspect]
     Active Substance: VENETOCLAX
     Indication: SENILE OSTEOPOROSIS
  24. VENCLEXTA [Suspect]
     Active Substance: VENETOCLAX
     Indication: ANAEMIA
  25. VENCLEXTA [Suspect]
     Active Substance: VENETOCLAX
     Indication: BILIRUBIN EXCRETION DISORDER
  26. VENCLEXTA [Suspect]
     Active Substance: VENETOCLAX
     Indication: VITAMIN B COMPLEX DEFICIENCY
  27. VENCLEXTA [Suspect]
     Active Substance: VENETOCLAX
     Indication: THROMBOCYTOPENIA
  28. VENCLEXTA [Suspect]
     Active Substance: VENETOCLAX
     Indication: PREMEDICATION
  29. VENCLEXTA [Suspect]
     Active Substance: VENETOCLAX
     Indication: MAJOR DEPRESSION
  30. VENCLEXTA [Suspect]
     Active Substance: VENETOCLAX
     Indication: NEOPLASM MALIGNANT
  31. VENCLEXTA [Suspect]
     Active Substance: VENETOCLAX
     Indication: CARDIAC PACEMAKER INSERTION
  32. VENCLEXTA [Suspect]
     Active Substance: VENETOCLAX
     Indication: ATRIAL FIBRILLATION
  33. VENCLEXTA [Suspect]
     Active Substance: VENETOCLAX
     Indication: LUNG DISORDER
  34. VENCLEXTA [Suspect]
     Active Substance: VENETOCLAX
     Indication: OSTEOARTHRITIS
  35. VENCLEXTA [Suspect]
     Active Substance: VENETOCLAX
     Indication: THROMBOCYTOPENIA
  36. VENCLEXTA [Suspect]
     Active Substance: VENETOCLAX
     Indication: ANXIETY DISORDER

REACTIONS (5)
  - Gingival bleeding [Unknown]
  - Off label use [Unknown]
  - Stomatitis [Unknown]
  - Hospitalisation [Unknown]
  - Death [Fatal]

NARRATIVE: CASE EVENT DATE: 2020
